FAERS Safety Report 10215448 (Version 3)
Quarter: 2014Q3

REPORT INFORMATION
  Report Type: Spontaneous
  Country: JP (occurrence: JP)
  Receive Date: 20140604
  Receipt Date: 20140703
  Transmission Date: 20150326
  Serious: Yes (Hospitalization)
  Sender: FDA-Public Use
  Company Number: JP-009507513-1406JPN000894

PATIENT
  Age: 60 Year
  Sex: Female

DRUGS (1)
  1. TRYPTANOL [Suspect]
     Active Substance: AMITRIPTYLINE
     Indication: NOCTURIA
     Route: 048

REACTIONS (1)
  - Hyponatraemia [Recovering/Resolving]
